FAERS Safety Report 7900937-2 (Version None)
Quarter: 2011Q4

REPORT INFORMATION
  Report Type: 
  Country: None (occurrence: None)
  Receive Date: 20111108
  Receipt Date: 20111026
  Transmission Date: 20120403
  Serious: Yes (Other)
  Sender: FDA-Public Use
  Company Number: US-ELI_LILLY_AND_COMPANY-US201107005379

PATIENT
  Sex: Female
  Weight: 112.47 kg

DRUGS (9)
  1. CYMBALTA [Suspect]
     Dosage: 30 MG, UNK
  2. CYMBALTA [Suspect]
     Indication: COMPLEX REGIONAL PAIN SYNDROME
     Dosage: 60 MG, QD
     Dates: start: 20100101
  3. LYRICA [Concomitant]
     Dosage: 300 MG, QD
  4. LYRICA [Concomitant]
     Dosage: 100 MG, QD
  5. STRATTERA [Concomitant]
  6. VICODIN [Concomitant]
     Dosage: 1 DF, PRN
     Route: 048
  7. PROVENTIL-HFA [Concomitant]
     Indication: DYSPNOEA
     Dosage: 2 DF, PRN
  8. ZONEGRAN [Concomitant]
  9. CYMBALTA [Suspect]
     Dosage: 30 MG, QD
     Dates: end: 20110714

REACTIONS (21)
  - MIGRAINE [None]
  - DRUG INEFFECTIVE [None]
  - INFLUENZA LIKE ILLNESS [None]
  - FEELING ABNORMAL [None]
  - NEUROPATHY PERIPHERAL [None]
  - GLUCOSE TOLERANCE IMPAIRED [None]
  - WEIGHT INCREASED [None]
  - MENTAL IMPAIRMENT [None]
  - ADVERSE EVENT [None]
  - OFF LABEL USE [None]
  - INCREASED APPETITE [None]
  - PARAESTHESIA [None]
  - BODY TEMPERATURE INCREASED [None]
  - PAIN [None]
  - EMOTIONAL DISORDER [None]
  - DRUG WITHDRAWAL SYNDROME [None]
  - ANXIETY [None]
  - HYPOAESTHESIA [None]
  - CRYING [None]
  - BLOOD CHOLESTEROL INCREASED [None]
  - OEDEMA [None]
